FAERS Safety Report 24572863 (Version 7)
Quarter: 2025Q3

REPORT INFORMATION
  Report Type: Report from Study
  Country: CN (occurrence: CN)
  Receive Date: 20241101
  Receipt Date: 20250817
  Transmission Date: 20251021
  Serious: Yes (Hospitalization)
  Sender: DR REDDYS
  Company Number: CN-RDY-CLI/CHN/24/0015899

PATIENT
  Age: 8 Month
  Sex: Male
  Weight: 10 kg

DRUGS (14)
  1. VIGABATRIN [Suspect]
     Active Substance: VIGABATRIN
     Indication: Infantile spasms
     Dosage: 50MG/KG/D, 4.25 ML/TIME, STILL HAS SEIZURES.
     Route: 048
     Dates: start: 20240807, end: 20240811
  2. VIGABATRIN [Suspect]
     Active Substance: VIGABATRIN
     Dosage: 75MG/KG/D, 6.5 ML/TIME, STILL HAS SEIZURES.
     Route: 048
     Dates: start: 20240812, end: 20240812
  3. VIGABATRIN [Suspect]
     Active Substance: VIGABATRIN
     Dosage: 71MG/KG/D, 6ML/TIME, SEIZURES STILL PRESENT ON 13-AUG
     Route: 048
     Dates: start: 20240813, end: 20240815
  4. VIGABATRIN [Suspect]
     Active Substance: VIGABATRIN
     Dosage: 75MG/KG/D, 6.5 ML/TIME, TAKE 9ML AS PRESCRIBED BY THE DOCTOR
     Route: 048
     Dates: start: 20240815, end: 20240820
  5. VIGABATRIN [Suspect]
     Active Substance: VIGABATRIN
     Dosage: 105 MG/KG/D, 9ML/TIME
     Route: 048
     Dates: start: 20240821, end: 20240825
  6. VIGABATRIN [Suspect]
     Active Substance: VIGABATRIN
     Dosage: 140MG/KG/D, 12ML/TIME
     Route: 048
     Dates: start: 20240826, end: 20240903
  7. VIGABATRIN [Suspect]
     Active Substance: VIGABATRIN
     Dosage: 120MG/KG/D, 12ML/TIME
     Route: 048
     Dates: start: 20240903, end: 20240929
  8. VIGABATRIN [Suspect]
     Active Substance: VIGABATRIN
     Dosage: 120MG/KG/D, 12.6 ML/TIME
     Route: 048
     Dates: start: 20241002, end: 20241031
  9. VIGABATRIN [Suspect]
     Active Substance: VIGABATRIN
     Dosage: 120MG/KG/D, 12ML/TIME. FIRST ATTACK ON 01-OCT-2024
     Route: 048
     Dates: start: 20240929, end: 20241001
  10. VIGABATRIN [Suspect]
     Active Substance: VIGABATRIN
     Dosage: 120MG/KG/D, 12.6 ML/TIME
     Route: 048
     Dates: start: 20241031, end: 20250121
  11. VITAMIN B6 [Concomitant]
     Active Substance: PYRIDOXINE HYDROCHLORIDE
     Indication: Infantile spasms
     Dosage: IVGTT
     Route: 065
     Dates: start: 20240803, end: 20240807
  12. DEXMEDETOMIDINE HYDROCHLORIDE [Concomitant]
     Active Substance: DEXMEDETOMIDINE HYDROCHLORIDE
     Indication: Anaesthesia
     Dosage: INTRANASAL  DRIPPING,  ONCE TEMPORARILY
     Route: 045
     Dates: start: 20240806, end: 20240806
  13. CHLORAL HYDRATE [Concomitant]
     Active Substance: CHLORAL HYDRATE
     Indication: Anaesthesia
     Route: 048
     Dates: start: 20240806, end: 20240806
  14. SEVOFLURANE [Concomitant]
     Active Substance: SEVOFLURANE
     Indication: Anaesthesia
     Dosage: 2-3ML/MIN, INHALATION, TEMPORARY ONCE
     Route: 055
     Dates: start: 20240806, end: 20240806

REACTIONS (2)
  - Tracheitis [Recovered/Resolved]
  - Laryngeal obstruction [Recovered/Resolved]

NARRATIVE: CASE EVENT DATE: 20241004
